FAERS Safety Report 10180162 (Version 2)
Quarter: 2014Q2

REPORT INFORMATION
  Report Type: Spontaneous
  Country: US (occurrence: US)
  Receive Date: 20140519
  Receipt Date: 20140519
  Transmission Date: 20141212
  Serious: No
  Sender: FDA-Public Use
  Company Number: US-AMGEN INC.-USASP2013075212

PATIENT
  Age: 61 Year
  Sex: Female

DRUGS (8)
  1. PROLIA [Suspect]
     Indication: OSTEOPOROSIS POSTMENOPAUSAL
     Dosage: UNK
     Route: 065
     Dates: start: 201210
  2. NEURONTIN [Concomitant]
     Dosage: 900 MG, QD
  3. TRAZODONE [Concomitant]
     Dosage: 100 MG, QHS
  4. PREMARIN [Concomitant]
  5. DEXILANT [Concomitant]
     Dosage: 60 MG, QD
  6. CALCIUM WITH VITAMIN D             /00944201/ [Concomitant]
     Dosage: 1200 MG/ 500 MG
  7. TYLENOL                            /00020001/ [Concomitant]
     Dosage: 1 TO 2, QD
  8. VALIUM [Concomitant]
     Dosage: AS NECESSARY, MAYBE TWICE A MONTH

REACTIONS (2)
  - Tooth disorder [Unknown]
  - Gingival disorder [Unknown]
